FAERS Safety Report 23130553 (Version 1)
Quarter: 2023Q4

REPORT INFORMATION
  Report Type: Spontaneous
  Country: PL (occurrence: PL)
  Receive Date: 20231031
  Receipt Date: 20231031
  Transmission Date: 20240109
  Serious: Yes (Hospitalization, Other)
  Sender: FDA-Public Use
  Company Number: PL-SUN PHARMACEUTICAL INDUSTRIES LTD-2023R1-415337

PATIENT
  Age: 14 Year
  Sex: Female

DRUGS (2)
  1. METHOTREXATE [Suspect]
     Active Substance: METHOTREXATE
     Indication: Scleroderma
     Dosage: UNK
     Route: 065
  2. PREDNISONE [Suspect]
     Active Substance: PREDNISONE
     Indication: Scleroderma
     Dosage: UNK
     Route: 065

REACTIONS (8)
  - Abdominal pain [Unknown]
  - Dehydration [Unknown]
  - Dizziness [Unknown]
  - Gastroenteritis [Unknown]
  - Inflammation [Unknown]
  - Visual impairment [Unknown]
  - Depression [Unknown]
  - Infectious mononucleosis [Unknown]
